FAERS Safety Report 7544592 (Version 13)
Quarter: 2014Q2

REPORT INFORMATION
  Report Type: Spontaneous
  Country: CA (occurrence: CA)
  Receive Date: 20100817
  Receipt Date: 20140506
  Transmission Date: 20141212
  Serious: Yes (Other)
  Sender: FDA-Public Use
  Company Number: CA-ROCHE-GNE305211

PATIENT
  Age: 49 Year
  Sex: Male
  Weight: 83.08 kg

DRUGS (13)
  1. XOLAIR [Suspect]
     Indication: ASTHMA
     Route: 058
     Dates: start: 20051128
  2. XOLAIR [Suspect]
     Route: 058
  3. XOLAIR [Suspect]
     Route: 058
  4. XOLAIR [Suspect]
     Route: 058
     Dates: start: 20130121
  5. XOLAIR [Suspect]
     Route: 058
     Dates: start: 20130303
  6. XOLAIR [Suspect]
     Route: 058
     Dates: start: 20130401
  7. XOLAIR [Suspect]
     Route: 065
     Dates: start: 20130808
  8. XOLAIR [Suspect]
     Route: 065
     Dates: start: 20130819
  9. XOLAIR [Suspect]
     Route: 058
     Dates: start: 20131112
  10. SPIRIVA [Concomitant]
  11. PULMICORT [Concomitant]
  12. SINGULAIR [Concomitant]
  13. SYMBICORT [Concomitant]

REACTIONS (22)
  - Upper limb fracture [Unknown]
  - Accident [Unknown]
  - Lung neoplasm malignant [Unknown]
  - Food poisoning [Unknown]
  - Gastrooesophageal reflux disease [Unknown]
  - Abdominal discomfort [Unknown]
  - Influenza [Unknown]
  - Lower respiratory tract infection [Unknown]
  - Productive cough [Unknown]
  - Muscle spasms [Not Recovered/Not Resolved]
  - Wheezing [Unknown]
  - Rales [Unknown]
  - Asthma [Unknown]
  - Respiratory disorder [Unknown]
  - Blood pressure increased [Not Recovered/Not Resolved]
  - Musculoskeletal chest pain [Unknown]
  - Dyspnoea [Unknown]
  - Obstructive airways disorder [Recovered/Resolved]
  - Pulmonary congestion [Unknown]
  - Rhonchi [Unknown]
  - Weight decreased [Unknown]
  - Malaise [Unknown]
